FAERS Safety Report 8385517-X (Version None)
Quarter: 2012Q2

REPORT INFORMATION
  Report Type: 
  Country: None (occurrence: None)
  Receive Date: 20120525
  Receipt Date: 20120522
  Transmission Date: 20120825
  Serious: No
  Sender: FDA-Public Use
  Company Number: US-BIOGENIDEC-2012BI018004

PATIENT
  Age: 49 Year
  Sex: Female

DRUGS (6)
  1. AVONEX [Concomitant]
     Indication: MULTIPLE SCLEROSIS
     Route: 030
  2. AVONEX [Concomitant]
     Route: 030
     Dates: start: 20020927
  3. AVONEX [Concomitant]
     Route: 030
  4. TYSABRI [Suspect]
     Indication: MULTIPLE SCLEROSIS
     Route: 042
     Dates: start: 20090302, end: 20090330
  5. TYLENOL [Concomitant]
     Indication: PREMEDICATION
     Dates: start: 20120521
  6. TYSABRI [Suspect]
     Route: 042
     Dates: start: 20120424

REACTIONS (1)
  - HYPERTENSION [None]
